FAERS Safety Report 7007418-1 (Version None)
Quarter: 2010Q3

REPORT INFORMATION
  Report Type: 
  Country: None (occurrence: None)
  Receive Date: 20100914
  Receipt Date: 20100909
  Transmission Date: 20110219
  Serious: Yes (Other)
  Sender: FDA-Public Use
  Company Number: 2010SP041575

PATIENT
  Age: 22 Year
  Sex: Female
  Weight: 119.296 kg

DRUGS (1)
  1. IMPLANON [Suspect]
     Indication: CONTRACEPTION
     Dosage: 68 MG SBDE
     Route: 059
     Dates: start: 20100629

REACTIONS (5)
  - CONTUSION [None]
  - MOBILITY DECREASED [None]
  - OEDEMA PERIPHERAL [None]
  - SWELLING FACE [None]
  - SWOLLEN TONGUE [None]
